FAERS Safety Report 9210148 (Version 2)
Quarter: 2013Q2

REPORT INFORMATION
  Report Type: Report from Study
  Country: US (occurrence: US)
  Receive Date: 20130404
  Receipt Date: 20130408
  Transmission Date: 20140414
  Serious: Yes (Hospitalization)
  Sender: FDA-Public Use
  Company Number: US-ROCHE-1208649

PATIENT
  Age: 39 Year
  Sex: Female
  Weight: 77.18 kg

DRUGS (2)
  1. RITUXIMAB [Suspect]
     Indication: RHEUMATOID ARTHRITIS
     Dosage: LAST INFUSION WAS GIVEN ON 25/MAR/2013
     Route: 042
     Dates: start: 2008
  2. ARAVA [Concomitant]
     Indication: RHEUMATOID ARTHRITIS
     Route: 048

REACTIONS (4)
  - VIIth nerve paralysis [Recovering/Resolving]
  - Tongue discolouration [Not Recovered/Not Resolved]
  - Aphasia [Not Recovered/Not Resolved]
  - Dysgeusia [Not Recovered/Not Resolved]
